FAERS Safety Report 7790942-1 (Version None)
Quarter: 2011Q3

REPORT INFORMATION
  Report Type: 
  Country: None (occurrence: None)
  Receive Date: 20110930
  Receipt Date: 20110930
  Transmission Date: 20111222
  Serious: Yes (Death)
  Sender: FDA-Public Use
  Company Number: None

PATIENT
  Age: 35 Day
  Sex: Female
  Weight: 3.1751 kg

DRUGS (2)
  1. LEXAPRO [Suspect]
     Indication: BIPOLAR II DISORDER
     Dates: start: 20020916, end: 20031017
  2. LAMICTAL [Concomitant]

REACTIONS (2)
  - MATERNAL DRUGS AFFECTING FOETUS [None]
  - SUDDEN INFANT DEATH SYNDROME [None]
